FAERS Safety Report 9375559 (Version 2)
Quarter: 2013Q3

REPORT INFORMATION
  Report Type: Report from Study
  Country: FR (occurrence: FR)
  Receive Date: 20130628
  Receipt Date: 20130705
  Transmission Date: 20140515
  Serious: Yes (Death, Other)
  Sender: FDA-Public Use
  Company Number: FR-BAYER-2013-079338

PATIENT
  Sex: 0

DRUGS (1)
  1. BLINDED ACETYLSALICYLIC ACID({=100 MG) [Suspect]
     Dosage: UNK
     Dates: end: 20130412

REACTIONS (2)
  - Myocardial infarction [Fatal]
  - Cardiac arrest [None]
